FAERS Safety Report 14444332 (Version 1)
Quarter: 2018Q1

REPORT INFORMATION
  Report Type: Spontaneous
  Country: US (occurrence: US)
  Receive Date: 20180125
  Receipt Date: 20180125
  Transmission Date: 20180509
  Serious: Yes (Disabling)
  Sender: FDA-Public Use
  Company Number: None

PATIENT
  Age: 66 Year
  Sex: Female
  Weight: 58.5 kg

DRUGS (8)
  1. MEDROXYPROGESTERONE 2.5 MG TABLETS [Suspect]
     Active Substance: MEDROXYPROGESTERONE
     Indication: HOT FLUSH
     Dosage: ?          QUANTITY:1 TABLET(S);?
     Route: 048
     Dates: start: 20170915, end: 20180115
  2. ESTRODIOL [Suspect]
     Active Substance: ESTRADIOL
     Indication: HOT FLUSH
     Dosage: ?          QUANTITY:1 TABLET(S);?
     Route: 048
     Dates: start: 20170915, end: 20180115
  3. VITAMIN D3 [Concomitant]
     Active Substance: CHOLECALCIFEROL
  4. MEDROXYPROGESTERONE 2.5 MG TABLETS [Suspect]
     Active Substance: MEDROXYPROGESTERONE
     Indication: MOOD SWINGS
     Dosage: ?          QUANTITY:1 TABLET(S);?
     Route: 048
     Dates: start: 20170915, end: 20180115
  5. ESTRODIOL [Suspect]
     Active Substance: ESTRADIOL
     Indication: INSOMNIA
     Dosage: ?          QUANTITY:1 TABLET(S);?
     Route: 048
     Dates: start: 20170915, end: 20180115
  6. MEDROXYPROGESTERONE 2.5 MG TABLETS [Suspect]
     Active Substance: MEDROXYPROGESTERONE
     Indication: INSOMNIA
     Dosage: ?          QUANTITY:1 TABLET(S);?
     Route: 048
     Dates: start: 20170915, end: 20180115
  7. ESTRODIOL [Suspect]
     Active Substance: ESTRADIOL
     Indication: MOOD SWINGS
     Dosage: ?          QUANTITY:1 TABLET(S);?
     Route: 048
     Dates: start: 20170915, end: 20180115
  8. PAMELOR [Concomitant]
     Active Substance: NORTRIPTYLINE HYDROCHLORIDE

REACTIONS (3)
  - Nervousness [None]
  - Insomnia [None]
  - Anxiety [None]

NARRATIVE: CASE EVENT DATE: 20171005
